FAERS Safety Report 6856234-X (Version None)
Quarter: 2010Q2

REPORT INFORMATION
  Report Type: 
  Country: None (occurrence: None)
  Receive Date: 20100630
  Receipt Date: 20100414
  Transmission Date: 20101027
  Serious: No
  Sender: FDA-Public Use
  Company Number: 1000013198

PATIENT
  Age: 42 Year
  Sex: Male

DRUGS (4)
  1. BYSTOLIC [Suspect]
     Indication: HYPERTENSION
     Dosage: 10 MG (10 MG,1 IN 1 D), ORAL
     Route: 048
     Dates: start: 20100324
  2. SIMVASTATIN [Concomitant]
  3. LOVANZA [Concomitant]
  4. ASPIRIN [Concomitant]

REACTIONS (1)
  - ACNE [None]
